FAERS Safety Report 9960173 (Version 2)
Quarter: 2014Q1

REPORT INFORMATION
  Report Type: Report from Study
  Country: US (occurrence: US)
  Receive Date: 20140305
  Receipt Date: 20140305
  Transmission Date: 20141002
  Serious: Yes (Other)
  Sender: FDA-Public Use
  Company Number: US-ABBVIE-12P-163-1021734-00

PATIENT
  Age: 53 Year
  Sex: Female

DRUGS (24)
  1. HUMIRA [Suspect]
     Indication: CROHN^S DISEASE
     Route: 058
     Dates: start: 20121121, end: 20121121
  2. HUMIRA [Suspect]
     Route: 058
     Dates: start: 20121205, end: 20121205
  3. HUMIRA [Suspect]
     Route: 058
     Dates: start: 20121219, end: 20130411
  4. HUMIRA [Suspect]
     Route: 058
     Dates: start: 20130411, end: 20130428
  5. IMURAN [Suspect]
     Indication: PRODUCT USED FOR UNKNOWN INDICATION
  6. PAXIL [Concomitant]
     Indication: PRODUCT USED FOR UNKNOWN INDICATION
  7. MULTIVITAMINS [Concomitant]
     Indication: PRODUCT USED FOR UNKNOWN INDICATION
     Dosage: DAILY
  8. ZYRTEC [Concomitant]
     Indication: HYPERSENSITIVITY
  9. VITAMIN B [Concomitant]
     Indication: PRODUCT USED FOR UNKNOWN INDICATION
     Route: 050
  10. PRILOSEC [Concomitant]
     Indication: GASTROOESOPHAGEAL REFLUX DISEASE
     Dates: start: 201303
  11. OTC NASAL SPRAY [Concomitant]
     Indication: NASAL DRYNESS
  12. FISH OIL [Concomitant]
     Indication: GASTROINTESTINAL DISORDER
     Dosage: DAILY
  13. FISH OIL [Concomitant]
     Indication: CARDIAC DISORDER
  14. VITAMIN B 12 [Concomitant]
     Indication: GASTROINTESTINAL DISORDER
     Dosage: DAILY
  15. VITAMIN B 12 [Concomitant]
     Indication: CARDIAC DISORDER
  16. VITAMIN D3 [Concomitant]
     Indication: GASTROINTESTINAL DISORDER
  17. VITAMIN D3 [Concomitant]
     Indication: CARDIAC DISORDER
  18. CALCIUM/VITAMIN D [Concomitant]
     Indication: GASTROINTESTINAL DISORDER
     Dosage: DAILY
  19. CALCIUM/VITAMIN D [Concomitant]
     Indication: CARDIAC DISORDER
  20. IRON [Concomitant]
     Indication: GASTROINTESTINAL DISORDER
     Dosage: DAILY
  21. IRON [Concomitant]
     Indication: CARDIAC DISORDER
  22. GINKGO BILOBA [Concomitant]
     Indication: MEMORY IMPAIRMENT
     Dosage: DAILY
  23. KLOR-CON [Concomitant]
     Indication: BLOOD POTASSIUM DECREASED
  24. NORVASC [Concomitant]
     Indication: BLOOD PRESSURE ABNORMAL
     Dates: end: 20130513

REACTIONS (8)
  - Malignant melanoma [Not Recovered/Not Resolved]
  - Abdominal distension [Not Recovered/Not Resolved]
  - Diarrhoea [Not Recovered/Not Resolved]
  - Drug ineffective [Unknown]
  - Diarrhoea [Not Recovered/Not Resolved]
  - Injection site pruritus [Not Recovered/Not Resolved]
  - Arthralgia [Not Recovered/Not Resolved]
  - Joint swelling [Not Recovered/Not Resolved]
